FAERS Safety Report 15622024 (Version 1)
Quarter: 2018Q4

REPORT INFORMATION
  Report Type: Spontaneous
  Country: US (occurrence: US)
  Receive Date: 20181115
  Receipt Date: 20181115
  Transmission Date: 20190205
  Serious: No
  Sender: FDA-Public Use
  Company Number: US-009507513-1810USA013932

PATIENT
  Age: 62 Year
  Sex: Female

DRUGS (2)
  1. ALBUTEROL SULFATE. [Concomitant]
     Active Substance: ALBUTEROL SULFATE
  2. ASMANEX HFA [Suspect]
     Active Substance: MOMETASONE FUROATE
     Indication: BRONCHIAL DISORDER
     Dosage: 2 PUFFS ONCE DAILY
     Route: 055
     Dates: start: 201809

REACTIONS (4)
  - Product use in unapproved indication [Unknown]
  - Cough [Not Recovered/Not Resolved]
  - Product dose omission [Unknown]
  - Chest discomfort [Not Recovered/Not Resolved]

NARRATIVE: CASE EVENT DATE: 201809
